FAERS Safety Report 9494530 (Version 1)
Quarter: 2013Q3

REPORT INFORMATION
  Report Type: Spontaneous
  Country: FR (occurrence: FR)
  Receive Date: 20130903
  Receipt Date: 20130903
  Transmission Date: 20140515
  Serious: Yes (Hospitalization)
  Sender: FDA-Public Use
  Company Number: FR-PFIZER INC-2013252099

PATIENT
  Age: 66 Year
  Sex: Male

DRUGS (3)
  1. ATENOLOL [Suspect]
     Indication: HYPERTENSION
     Dosage: 50 MG, 1X/DAY
     Route: 048
     Dates: end: 2013
  2. ATENOLOL [Suspect]
     Dosage: 50 MG, 1X/DAY
     Route: 048
     Dates: start: 201308
  3. ODRIK [Concomitant]
     Dosage: UNK
     Route: 065

REACTIONS (2)
  - Nasal sinus cancer [Not Recovered/Not Resolved]
  - Vomiting [Not Recovered/Not Resolved]
